FAERS Safety Report 21250287 (Version 1)
Quarter: 2022Q3

REPORT INFORMATION
  Report Type: Spontaneous
  Country: US (occurrence: None)
  Receive Date: 20220823
  Receipt Date: 20220823
  Transmission Date: 20221026
  Serious: Yes (Other)
  Sender: FDA-Public Use
  Company Number: None

PATIENT
  Age: 51 Year
  Sex: Male

DRUGS (1)
  1. EMTRICITABINE\TENOFOVIR DISOPROXIL FUMARATE [Suspect]
     Active Substance: EMTRICITABINE\TENOFOVIR DISOPROXIL FUMARATE
     Dosage: FREQUENCY : DAILY;?
     Route: 048
     Dates: start: 20220720

REACTIONS (5)
  - Headache [None]
  - Anxiety [None]
  - Diarrhoea [None]
  - Palpitations [None]
  - Personality change [None]

NARRATIVE: CASE EVENT DATE: 20220823
